FAERS Safety Report 5433612-7 (Version None)
Quarter: 2007Q3

REPORT INFORMATION
  Report Type: 
  Country: None (occurrence: None)
  Receive Date: 20070831
  Receipt Date: 20070821
  Transmission Date: 20080115
  Serious: No
  Sender: FDA-Public Use
  Company Number: A0665915A

PATIENT
  Age: 44 Year
  Sex: Female

DRUGS (1)
  1. ALLI [Suspect]
     Indication: DRUG USE FOR UNKNOWN INDICATION
     Route: 048
     Dates: start: 20070601

REACTIONS (6)
  - ABDOMINAL PAIN [None]
  - DYSURIA [None]
  - FEAR [None]
  - HEADACHE [None]
  - MENORRHAGIA [None]
  - MENSTRUATION IRREGULAR [None]
